FAERS Safety Report 10757500 (Version 3)
Quarter: 2015Q1

REPORT INFORMATION
  Report Type: Report from Study
  Country: US (occurrence: None)
  Receive Date: 20150130
  Receipt Date: 20150220
  Transmission Date: 20150721
  Serious: Yes (Hospitalization)
  Sender: FDA-Public Use
  Company Number: 2015SGN00057

PATIENT
  Age: 73 Year
  Sex: Female
  Weight: 59 kg

DRUGS (13)
  1. BENDAMUSTINE HYDROCHLORIDE [Suspect]
     Active Substance: BENDAMUSTINE HYDROCHLORIDE
     Indication: HODGKIN^S DISEASE
     Dosage: QCYCLE
     Route: 042
     Dates: start: 20141222, end: 20150113
  2. DEXAMETHASONE (DEXAMETHASONE SODIUM PHOSPHATE) [Concomitant]
  3. VITAMIN D (COLECALCIFEROL) [Concomitant]
  4. FAMOTIDINE (FAMOTIDINE) [Concomitant]
     Active Substance: FAMOTIDINE
  5. FERROUS SULFATE [Concomitant]
     Active Substance: FERROUS SULFATE\FERROUS SULFATE, DRIED
  6. LEVOTHYROXINE (LEVOTHYROXINE SOIDUM) [Concomitant]
  7. TOPICORT (DESOXIMETASONE) [Concomitant]
  8. GRANISETRON (GRANISETRON HYDROCHLORIDE) [Concomitant]
  9. OMEPRAZOLE (OMEPRAZOLE) [Concomitant]
     Active Substance: OMEPRAZOLE
  10. ONDANSETRON. [Concomitant]
     Active Substance: ONDANSETRON
  11. BRENTUXIMAB VEDOTIN [Suspect]
     Active Substance: BRENTUXIMAB VEDOTIN
     Indication: HODGKIN^S DISEASE
     Dosage: QCYCLE
     Route: 042
     Dates: start: 20141222, end: 20150113
  12. DIPHENHYDRAMINE (DIPHENHYDRAMINE) [Concomitant]
     Active Substance: DIPHENHYDRAMINE
  13. HYDROXYZINE HCL (HYDROXYZINE HYDROCHLORIDE) [Concomitant]

REACTIONS (3)
  - Tachycardia [None]
  - Hypotension [None]
  - Pyrexia [None]

NARRATIVE: CASE EVENT DATE: 20150114
